FAERS Safety Report 10097669 (Version 1)
Quarter: 2014Q2

REPORT INFORMATION
  Report Type: Spontaneous
  Country: US (occurrence: US)
  Receive Date: 20140423
  Receipt Date: 20140423
  Transmission Date: 20141212
  Serious: No
  Sender: FDA-Public Use
  Company Number: US-BIOGENIDEC-2014BI034431

PATIENT
  Sex: Female

DRUGS (7)
  1. TECFIDERA [Suspect]
     Indication: MULTIPLE SCLEROSIS
     Route: 048
     Dates: start: 20130706, end: 20130712
  2. TECFIDERA [Suspect]
     Indication: MULTIPLE SCLEROSIS
     Route: 048
     Dates: start: 20130713
  3. SIMVASTATIN [Concomitant]
  4. NADOLOL [Concomitant]
  5. GABAPENTIN [Concomitant]
  6. AMPYRA [Concomitant]
  7. VIT D [Concomitant]

REACTIONS (1)
  - Urinary tract infection [Unknown]
